FAERS Safety Report 9636390 (Version 2)
Quarter: 2013Q4

REPORT INFORMATION
  Report Type: Spontaneous
  Country: US (occurrence: US)
  Receive Date: 20131021
  Receipt Date: 20131104
  Transmission Date: 20140711
  Serious: Yes (Other)
  Sender: FDA-Public Use
  Company Number: PHHY2013US116427

PATIENT
  Sex: Female

DRUGS (15)
  1. BACLOFEN INTRATHECAL [Suspect]
     Dosage: 483.75 UG/DAY
     Route: 037
  2. BACLOFEN INTRATHECAL [Suspect]
     Dosage: 712 UG/ML, AT 600 UG/DAY
  3. BACLOFEN INTRATHECAL [Suspect]
     Dosage: 500 UG/ML, AT 325 MCG/DAY
     Route: 037
  4. BACLOFEN INTRATHECAL [Suspect]
     Dosage: 712 UG/DAY
     Route: 037
  5. SERTRALINE HYDROCHLORIDE [Suspect]
     Dosage: 1 DF (1 TABLET), DAY
     Route: 048
  6. ATENOLOL [Suspect]
     Dosage: 1 DF(1 TABLET), QD
     Route: 048
  7. MORPHINE [Suspect]
     Dosage: 12.9 MG/DAY
     Route: 037
  8. MORPHINE [Suspect]
     Dosage: 19 MG/DAY
     Route: 037
  9. MORPHINE [Suspect]
     Dosage: 12 MG/DAY
     Route: 037
  10. MORPHINE [Suspect]
     Dosage: 10 MG/DAY
     Route: 037
  11. KLONOPIN [Suspect]
     Indication: ANXIETY
     Dosage: 1 DF(1 TABLET), TID
  12. DEXEDRINE [Suspect]
     Dosage: 1 DF(1 TABLET), BID
     Route: 048
  13. PLAVIX [Suspect]
     Dosage: 1 DF(1 TABLET), QD
     Route: 048
  14. ZANTAC [Suspect]
     Dosage: 1 DF(1 TABLET), BID
     Route: 048
  15. BACLOFEN [Concomitant]
     Dosage: UNK UKN, UNK

REACTIONS (22)
  - Joint swelling [Recovered/Resolved]
  - Cerebrovascular accident [Recovered/Resolved]
  - Balance disorder [Recovered/Resolved]
  - Contusion [Recovered/Resolved]
  - Nasal congestion [Recovered/Resolved]
  - Temperature intolerance [Recovered/Resolved]
  - Impaired healing [Recovered/Resolved]
  - Infection [Recovered/Resolved]
  - Joint stiffness [Recovered/Resolved]
  - Sputum increased [Recovered/Resolved]
  - Amnesia [Recovered/Resolved]
  - Hypoaesthesia [Recovered/Resolved]
  - Back pain [Recovered/Resolved]
  - Anxiety [Recovered/Resolved]
  - Depression [Recovered/Resolved]
  - Dyspnoea [Recovered/Resolved]
  - Fatigue [Recovered/Resolved]
  - Arthralgia [Recovered/Resolved]
  - Muscular weakness [Recovered/Resolved]
  - Pain [Recovered/Resolved]
  - Muscle spasticity [Recovered/Resolved]
  - Therapeutic response decreased [Recovered/Resolved]
